FAERS Safety Report 8860937 (Version 1)
Quarter: 2012Q4

REPORT INFORMATION
  Report Type: 
  Country: US (occurrence: US)
  Receive Date: 20121025
  Receipt Date: 20121025
  Transmission Date: 20130627
  Serious: No
  Sender: FDA-Public Use
  Company Number: US-AMGEN-USASP2012015205

PATIENT
  Age: 53 Year
  Sex: Female

DRUGS (3)
  1. ENBREL [Suspect]
     Indication: PRODUCT USED FOR UNKNOWN INDICATION
     Dosage: 50 mg, qwk
     Route: 058
     Dates: start: 2009
  2. GENTAMICIN [Concomitant]
     Dosage: 0.3 %, UNK
     Route: 047
  3. VITAMIN D /00107901/ [Concomitant]

REACTIONS (1)
  - Eye infection [Unknown]
